FAERS Safety Report 5166936-1 (Version None)
Quarter: 2006Q4

REPORT INFORMATION
  Report Type: 
  Country: None (occurrence: None)
  Receive Date: 20061207
  Receipt Date: 20061128
  Transmission Date: 20070319
  Serious: Yes (Hospitalization)
  Sender: FDA-Public Use
  Company Number: US-SANOFI-SYNTHELABO-A03200607131

PATIENT
  Sex: Male
  Weight: 71.65 kg

DRUGS (7)
  1. STOOL SOFTENER [Concomitant]
     Dosage: UNK
     Route: 048
  2. IRON [Concomitant]
     Dosage: UNK
     Route: 048
  3. PREDNISONE TAB [Concomitant]
     Route: 048
  4. LIPITOR [Concomitant]
     Route: 048
  5. PROTONIX [Concomitant]
     Route: 048
  6. COUMADIN [Concomitant]
     Dosage: 4 MG TO 5 MG QD
     Route: 048
  7. PLAVIX [Suspect]
     Indication: THROMBOSIS
     Route: 048
     Dates: start: 20061001

REACTIONS (3)
  - HAEMORRHAGE [None]
  - PROCEDURAL COMPLICATION [None]
  - THROMBOSIS [None]
